FAERS Safety Report 8085512-4 (Version None)
Quarter: 2012Q1

REPORT INFORMATION
  Report Type: 
  Country: None (occurrence: None)
  Receive Date: 20120128
  Receipt Date: 20110615
  Transmission Date: 20120608
  Serious: No
  Sender: FDA-Public Use
  Company Number: US-ABBOTT-11P-163-0709972-00

PATIENT
  Sex: Male
  Weight: 95.34 kg

DRUGS (2)
  1. NEXIUM [Concomitant]
     Indication: PRODUCT USED FOR UNKNOWN INDICATION
  2. HUMIRA [Suspect]
     Indication: PSORIASIS
     Dates: start: 20110228

REACTIONS (3)
  - INJECTION SITE PAIN [None]
  - INCORRECT STORAGE OF DRUG [None]
  - SUNBURN [None]
